FAERS Safety Report 8955274 (Version 1)
Quarter: 2012Q4

REPORT INFORMATION
  Report Type: Spontaneous
  Country: US (occurrence: None)
  Receive Date: 20121205
  Receipt Date: 20121205
  Transmission Date: 20130627
  Serious: Yes (Life-Threatening, Hospitalization, Other)
  Sender: FDA-Public Use
  Company Number: None

PATIENT
  Age: 24 Year
  Sex: Female
  Weight: 64.41 kg

DRUGS (3)
  1. JUNEL FE [Suspect]
     Indication: MUSCLE ACHE
     Dosage: 1 pill everyday
     Dates: start: 201106, end: 201206
  2. JUNEL FE [Suspect]
     Indication: MUSCLE CRAMPS
     Dosage: 1 pill everyday
     Dates: start: 201106, end: 201206
  3. SPRINTEC [Suspect]
     Indication: ADVERSE EVENT
     Dosage: 1 pill everyday
     Dates: start: 201206, end: 201208

REACTIONS (8)
  - Gastritis [None]
  - Chest pain [None]
  - Hypoaesthesia [None]
  - Blindness [None]
  - Balance disorder [None]
  - Fall [None]
  - Ovarian cyst [None]
  - Helicobacter infection [None]
